FAERS Safety Report 4782873-6 (Version None)
Quarter: 2005Q3

REPORT INFORMATION
  Report Type: 
  Country: None (occurrence: None)
  Receive Date: 20050929
  Receipt Date: 20040601
  Transmission Date: 20060218
  Serious: Yes (Hospitalization)
  Sender: FDA-Public Use
  Company Number: PHEH2004US06075

PATIENT
  Age: 54 Year
  Sex: Female

DRUGS (3)
  1. LIPITOR [Concomitant]
     Indication: HYPERCHOLESTEROLAEMIA
  2. DETROL [Concomitant]
     Indication: URINARY INCONTINENCE
  3. ZELNORM [Suspect]
     Indication: IRRITABLE BOWEL SYNDROME
     Dosage: 6 MG, BID
     Route: 048
     Dates: start: 20030501, end: 20040527

REACTIONS (9)
  - ABDOMINAL PAIN [None]
  - C-REACTIVE PROTEIN INCREASED [None]
  - COLITIS ISCHAEMIC [None]
  - COLONOSCOPY ABNORMAL [None]
  - COMPUTERISED TOMOGRAM ABNORMAL [None]
  - DIARRHOEA HAEMORRHAGIC [None]
  - HYPERHIDROSIS [None]
  - RECTAL HAEMORRHAGE [None]
  - WHITE BLOOD CELL COUNT INCREASED [None]
